FAERS Safety Report 4828836-3 (Version None)
Quarter: 2005Q4

REPORT INFORMATION
  Report Type: 
  Country: None (occurrence: None)
  Receive Date: 20051014
  Receipt Date: 20050620
  Transmission Date: 20060501
  Serious: No
  Sender: FDA-Public Use
  Company Number: 2005SP001191

PATIENT
  Age: 60 Year
  Sex: Female

DRUGS (6)
  1. LUNESTA [Suspect]
     Indication: INSOMNIA
     Dosage: SEE IMAGE
     Route: 048
  2. LEXAPRO [Concomitant]
  3. WELLBUTRIN [Concomitant]
  4. SONATA [Concomitant]
  5. AMBIEN [Concomitant]
  6. ATIVAN [Concomitant]

REACTIONS (2)
  - DRUG INEFFECTIVE [None]
  - INSOMNIA [None]
